FAERS Safety Report 4317233-5 (Version None)
Quarter: 2004Q1

REPORT INFORMATION
  Report Type: 
  Country: None (occurrence: None)
  Receive Date: 20040312
  Receipt Date: 20040302
  Transmission Date: 20041129
  Serious: Yes (Hospitalization)
  Sender: FDA-Public Use
  Company Number: KII-2004-0007846

PATIENT
  Age: 33 Year
  Sex: Male

DRUGS (3)
  1. SPECTRACEF [Suspect]
     Indication: PHARYNGITIS
     Dosage: 200 MG ,BID,
     Dates: start: 20031217, end: 20031226
  2. TUSSAPHED (PSEUDOEPHEDRINE HYDROCHLORIDE) [Concomitant]
  3. COUGH SYRUP (TERPIN HYDRATE, OPIUM TINCTURE, ANTIMONY POTASSIUM TARTRA [Concomitant]

REACTIONS (1)
  - PNEUMONIA [None]
